FAERS Safety Report 6378813-9 (Version None)
Quarter: 2009Q3

REPORT INFORMATION
  Report Type: 
  Country: None (occurrence: None)
  Receive Date: 20090928
  Receipt Date: 20090714
  Transmission Date: 20100115
  Serious: No
  Sender: FDA-Public Use
  Company Number: US-BAYER-200926631NA

PATIENT
  Age: 34 Year
  Sex: Female

DRUGS (1)
  1. MIRENA [Suspect]
     Indication: CONTRACEPTION
     Dosage: CONTINUOUS
     Route: 015
     Dates: start: 20080801

REACTIONS (6)
  - ABDOMINAL PAIN [None]
  - EPISTAXIS [None]
  - HEADACHE [None]
  - NAUSEA [None]
  - OCULAR HYPERAEMIA [None]
  - UTERINE HAEMORRHAGE [None]
